APPROVED DRUG PRODUCT: AKYNZEO
Active Ingredient: NETUPITANT; PALONOSETRON HYDROCHLORIDE
Strength: 300MG;EQ 0.5MG BASE
Dosage Form/Route: CAPSULE;ORAL
Application: N205718 | Product #001
Applicant: HELSINN HEALTHCARE SA
Approved: Oct 10, 2014 | RLD: Yes | RS: Yes | Type: RX

PATENTS:
Patent 9943515 | Expires: Nov 18, 2030
Patent 8623826 | Expires: Nov 18, 2030
Patent 9271975 | Expires: Sep 9, 2031
Patent 9186357 | Expires: Nov 18, 2030
Patent 10828297 | Expires: Dec 17, 2030
Patent 11559523 | Expires: Nov 18, 2030
Patent 12042494 | Expires: Nov 18, 2030
Patent 9951016 | Expires: Sep 25, 2035
Patent 8951969 | Expires: Nov 18, 2030
Patent 10676440 | Expires: Sep 25, 2035
Patent 10961195 | Expires: Sep 25, 2035
Patent 10233154 | Expires: Sep 25, 2035